FAERS Safety Report 20146459 (Version 1)
Quarter: 2021Q4

REPORT INFORMATION
  Report Type: Spontaneous
  Country: US (occurrence: US)
  Receive Date: 20211203
  Receipt Date: 20211203
  Transmission Date: 20220303
  Serious: No
  Sender: FDA-Public Use
  Company Number: US-PFIZER INC-202101655160

PATIENT
  Sex: Female

DRUGS (5)
  1. OXALIPLATIN [Suspect]
     Active Substance: OXALIPLATIN
     Dosage: UNK
  2. AVASTIN [Suspect]
     Active Substance: BEVACIZUMAB
     Dosage: UNK
  3. LEUCOVORIN [Suspect]
     Active Substance: LEUCOVORIN
     Dosage: UNK
  4. FLUOROURACIL [Suspect]
     Active Substance: FLUOROURACIL
     Dosage: UNK
  5. LONSURF [Suspect]
     Active Substance: TIPIRACIL HYDROCHLORIDE\TRIFLURIDINE
     Indication: Colorectal cancer metastatic
     Dosage: CYCLIC, (AFTER THE MORNING AND THE EVENING MEAL, ON DAY 1 THROUGH DAY 5, FOLLOWED BY A RECOVERY PERI
     Route: 048

REACTIONS (1)
  - Neoplasm progression [Unknown]
